FAERS Safety Report 23351493 (Version 1)
Quarter: 2023Q4

REPORT INFORMATION
  Report Type: Spontaneous
  Country: US (occurrence: None)
  Receive Date: 20231229
  Receipt Date: 20231229
  Transmission Date: 20240109
  Serious: No
  Sender: FDA-Public Use
  Company Number: None

PATIENT
  Sex: Female

DRUGS (1)
  1. XELJANZ XR [Suspect]
     Active Substance: TOFACITINIB CITRATE
     Dosage: 11 MG DAILY BY MOUTH
     Dates: start: 201903

REACTIONS (4)
  - Joint swelling [None]
  - Arthralgia [None]
  - Drug ineffective [None]
  - Arthropathy [None]
